FAERS Safety Report 18097259 (Version 1)
Quarter: 2020Q3

REPORT INFORMATION
  Report Type: Report from Study
  Country: US (occurrence: US)
  Receive Date: 20200730
  Receipt Date: 20200730
  Transmission Date: 20201103
  Serious: Yes (Hospitalization)
  Sender: FDA-Public Use
  Company Number: US-ACTELION-A-NJ2020-207701

PATIENT
  Sex: Male
  Weight: 83.9 kg

DRUGS (3)
  1. AMBRISENTAN [Concomitant]
     Active Substance: AMBRISENTAN
  2. TADALAFIL. [Concomitant]
     Active Substance: TADALAFIL
  3. VENTAVIS [Suspect]
     Active Substance: ILOPROST
     Indication: PULMONARY ARTERIAL HYPERTENSION
     Dosage: 5.0MCG INHALED 6 TO 9 TIMES PER DAY
     Route: 055

REACTIONS (1)
  - Hypertension [Unknown]
